FAERS Safety Report 7246276-7 (Version None)
Quarter: 2011Q1

REPORT INFORMATION
  Report Type: 
  Country: None (occurrence: None)
  Receive Date: 20110126
  Receipt Date: 20110119
  Transmission Date: 20110831
  Serious: Yes (Hospitalization, Other)
  Sender: FDA-Public Use
  Company Number: ES-ELI_LILLY_AND_COMPANY-ES201101004812

PATIENT
  Sex: Male

DRUGS (1)
  1. LISPRO REGLISPRO [Suspect]

REACTIONS (1)
  - KETOACIDOSIS [None]
